FAERS Safety Report 14328774 (Version 1)
Quarter: 2017Q4

REPORT INFORMATION
  Report Type: Spontaneous
  Country: GB (occurrence: GB)
  Receive Date: 20171227
  Receipt Date: 20171227
  Transmission Date: 20180321
  Serious: Yes (Other)
  Sender: FDA-Public Use
  Company Number: GB-PFIZER INC-2017547762

PATIENT
  Age: 45 Year
  Sex: Male

DRUGS (4)
  1. SERTRALINE HCL [Suspect]
     Active Substance: SERTRALINE HYDROCHLORIDE
     Dosage: 100 MG, UNK
  2. MIRTAZAPINE. [Suspect]
     Active Substance: MIRTAZAPINE
     Dosage: UNK
  3. AMITRIPTYLINE [Suspect]
     Active Substance: AMITRIPTYLINE
     Dosage: UNK
  4. SERTRALINE HCL [Suspect]
     Active Substance: SERTRALINE HYDROCHLORIDE
     Indication: DEPRESSION
     Dosage: 50 MG, UNK

REACTIONS (15)
  - Overconfidence [Unknown]
  - Paranoia [Unknown]
  - Serotonin syndrome [Unknown]
  - Hypomania [Unknown]
  - Psychopathic personality [Unknown]
  - Impatience [Unknown]
  - Hallucination [Unknown]
  - Grandiosity [Unknown]
  - Abnormal behaviour [Unknown]
  - Obsessive thoughts [Unknown]
  - Disturbance in attention [Unknown]
  - Aggression [Unknown]
  - Fear [Unknown]
  - Self-injurious ideation [Unknown]
  - Staring [Unknown]
